FAERS Safety Report 18614205 (Version 1)
Quarter: 2020Q4

REPORT INFORMATION
  Report Type: Spontaneous
  Country: US (occurrence: US)
  Receive Date: 20201214
  Receipt Date: 20201214
  Transmission Date: 20210114
  Serious: No
  Sender: FDA-Public Use
  Company Number: US-ABBVIE-19K-163-3200800-00

PATIENT
  Age: 58 Year
  Sex: Female
  Weight: 68.1 kg

DRUGS (5)
  1. IMBRUVICA [Suspect]
     Active Substance: IBRUTINIB
     Indication: CHRONIC LYMPHOCYTIC LEUKAEMIA
     Route: 048
     Dates: start: 201803
  2. TESTOSTERONE. [Concomitant]
     Active Substance: TESTOSTERONE
     Indication: PRODUCT USED FOR UNKNOWN INDICATION
  3. EFFEXOR [Concomitant]
     Active Substance: VENLAFAXINE HYDROCHLORIDE
     Indication: PRODUCT USED FOR UNKNOWN INDICATION
  4. ESTROGEN [Concomitant]
     Active Substance: ESTROGENS
     Indication: PRODUCT USED FOR UNKNOWN INDICATION
  5. PROGESTERONE. [Concomitant]
     Active Substance: PROGESTERONE
     Indication: PRODUCT USED FOR UNKNOWN INDICATION

REACTIONS (4)
  - Somnolence [Recovering/Resolving]
  - Fatigue [Recovering/Resolving]
  - Asthenia [Recovering/Resolving]
  - Hormone replacement therapy [Not Recovered/Not Resolved]

NARRATIVE: CASE EVENT DATE: 201905
